FAERS Safety Report 11723905 (Version 4)
Quarter: 2015Q4

REPORT INFORMATION
  Report Type: Other
  Country: US (occurrence: US)
  Receive Date: 20151111
  Receipt Date: 20151209
  Transmission Date: 20160304
  Serious: Yes (Other)
  Sender: FDA-Public Use
  Company Number: US-COL_21135_2015

PATIENT
  Age: 61 Year
  Sex: Female

DRUGS (3)
  1. METFORMIN [Concomitant]
     Active Substance: METFORMIN HYDROCHLORIDE
     Indication: DIABETES MELLITUS
     Dosage: NI
  2. LANTUS [Concomitant]
     Active Substance: INSULIN GLARGINE
     Indication: DIABETES MELLITUS
     Dosage: 20 UNITS AT NIGHT WHEN SUGAR IS HIGH
  3. LADY SPEED STICK CLINICAL PROOF PH ACTIVE [Suspect]
     Active Substance: ALUMINUM ZIRCONIUM TETRACHLOROHYDREX GLY
     Dosage: ONE SWIPE TO EACH UNDERARM/ DAILY IN THE MORNING/
     Route: 061
     Dates: start: 20151023, end: 20151027

REACTIONS (3)
  - Furuncle [Not Recovered/Not Resolved]
  - Axillary pain [Not Recovered/Not Resolved]
  - Cyst [Not Recovered/Not Resolved]

NARRATIVE: CASE EVENT DATE: 2015
